FAERS Safety Report 7647644-1 (Version None)
Quarter: 2011Q3

REPORT INFORMATION
  Report Type: 
  Country: None (occurrence: None)
  Receive Date: 20110801
  Receipt Date: 20110801
  Transmission Date: 20111222
  Serious: Yes (Other)
  Sender: FDA-Public Use
  Company Number: None

PATIENT
  Age: 48 Year
  Sex: Female
  Weight: 81.646 kg

DRUGS (1)
  1. SOLODYN [Suspect]
     Dosage: 80 MG
     Route: 048
     Dates: start: 20110718, end: 20110727

REACTIONS (1)
  - ORAL PAIN [None]
